FAERS Safety Report 24391598 (Version 1)
Quarter: 2024Q4

REPORT INFORMATION
  Report Type: Spontaneous
  Country: LV (occurrence: LV)
  Receive Date: 20241003
  Receipt Date: 20241003
  Transmission Date: 20250114
  Serious: Yes (Other)
  Sender: BAYER
  Company Number: LV-BAYER-2024A139215

PATIENT
  Age: 60 Year
  Sex: Male

DRUGS (3)
  1. XOFIGO [Suspect]
     Active Substance: RADIUM RA-223 DICHLORIDE
     Indication: Hormone-refractory prostate cancer
     Dosage: 6,22 UNK
     Route: 042
     Dates: start: 20230921, end: 20230921
  2. XOFIGO [Suspect]
     Active Substance: RADIUM RA-223 DICHLORIDE
     Indication: Prostate cancer
     Dosage: 6,05 MBQ
     Route: 042
     Dates: start: 20231019, end: 20231019
  3. XOFIGO [Suspect]
     Active Substance: RADIUM RA-223 DICHLORIDE
     Indication: Hormone-refractory prostate cancer
     Dosage: 622 UNK
     Route: 042
     Dates: start: 20231116, end: 20231116

REACTIONS (1)
  - Metastases to liver [None]
